FAERS Safety Report 16883572 (Version 1)
Quarter: 2019Q4

REPORT INFORMATION
  Report Type: Spontaneous
  Country: DE (occurrence: DE)
  Receive Date: 20191004
  Receipt Date: 20191004
  Transmission Date: 20200122
  Serious: Yes (Hospitalization)
  Sender: FDA-Public Use
  Company Number: DE-TEVA-2019-DE-1117240

PATIENT
  Age: 49 Year
  Sex: Male
  Weight: 92 kg

DRUGS (3)
  1. BRIVIACT [Suspect]
     Active Substance: BRIVARACETAM
     Indication: EPILEPSY
     Dosage: 2X1 (200 MG)?DIFFERENT BATCHES
     Route: 048
     Dates: start: 20190810
  2. QUETIAPIN (QUETIAPINE) [Suspect]
     Active Substance: QUETIAPINE
     Indication: MENTAL DISORDER
     Dosage: 2X1 (100 MG)
     Route: 048
     Dates: start: 20190815
  3. VIMPAT 200 MG [Concomitant]
     Indication: EPILEPSY
     Dosage: 2X1 (400 MG)
     Dates: start: 2013

REACTIONS (4)
  - Rash [Not Recovered/Not Resolved]
  - Peripheral swelling [Not Recovered/Not Resolved]
  - Erythema [Not Recovered/Not Resolved]
  - Alopecia [Recovered/Resolved]

NARRATIVE: CASE EVENT DATE: 20190820
